FAERS Safety Report 10150022 (Version 2)
Quarter: 2014Q2

REPORT INFORMATION
  Report Type: Spontaneous
  Country: US (occurrence: US)
  Receive Date: 20140502
  Receipt Date: 20140602
  Transmission Date: 20141212
  Serious: No
  Sender: FDA-Public Use
  Company Number: US-009507513-1404USA006130

PATIENT
  Sex: Female

DRUGS (3)
  1. MIRALAX [Suspect]
     Indication: CONSTIPATION
     Dosage: 1 DF, TID
     Route: 048
     Dates: start: 201403
  2. MIRALAX [Suspect]
     Dosage: 1 DF, TID
     Route: 048
     Dates: start: 201403
  3. SENOKOT (SENNA) [Suspect]
     Indication: PRODUCT USED FOR UNKNOWN INDICATION
     Dosage: 3 DF, QPM
     Route: 048

REACTIONS (3)
  - Frequent bowel movements [Unknown]
  - Incorrect drug administration duration [Unknown]
  - Drug effect decreased [Unknown]
